FAERS Safety Report 21186447 (Version 9)
Quarter: 2025Q3

REPORT INFORMATION
  Report Type: Report from Study
  Country: US (occurrence: US)
  Receive Date: 20220808
  Receipt Date: 20250730
  Transmission Date: 20251020
  Serious: Yes (Hospitalization, Other)
  Sender: TAKEDA
  Company Number: US-TAKEDA-US202011145

PATIENT
  Age: 75 Year
  Sex: Male

DRUGS (2)
  1. HUMAN IMMUNOGLOBULIN G\HYALURONIDASE RECOMBINANT HUMAN [Suspect]
     Active Substance: HUMAN IMMUNOGLOBULIN G\HYALURONIDASE (HUMAN RECOMBINANT)
     Indication: Primary immunodeficiency syndrome
  2. HUMAN IMMUNOGLOBULIN G\HYALURONIDASE RECOMBINANT HUMAN [Suspect]
     Active Substance: HUMAN IMMUNOGLOBULIN G\HYALURONIDASE (HUMAN RECOMBINANT)
     Indication: Immunodeficiency common variable

REACTIONS (16)
  - Confusional state [Unknown]
  - Dementia Alzheimer^s type [Not Recovered/Not Resolved]
  - Dementia [Not Recovered/Not Resolved]
  - Immunoglobulins decreased [Unknown]
  - Insomnia [Unknown]
  - Infusion site erythema [Unknown]
  - Bronchitis [Unknown]
  - Drug hypersensitivity [Unknown]
  - Memory impairment [Unknown]
  - Spinal pain [Unknown]
  - Spinal disorder [Recovering/Resolving]
  - Spinal stenosis [Unknown]
  - Fall [Unknown]
  - Hernia [Unknown]
  - Inappropriate schedule of product administration [Unknown]
  - Infusion site pain [Unknown]

NARRATIVE: CASE EVENT DATE: 20241218
